FAERS Safety Report 14612118 (Version 1)
Quarter: 2018Q1

REPORT INFORMATION
  Report Type: Spontaneous
  Country: US (occurrence: US)
  Receive Date: 20180307
  Receipt Date: 20180307
  Transmission Date: 20180509
  Serious: Yes (Other)
  Sender: FDA-Public Use
  Company Number: None

PATIENT
  Age: 39 Year
  Sex: Female
  Weight: 83.25 kg

DRUGS (5)
  1. OMEGA 3 [Concomitant]
     Active Substance: OMEGA-3 FATTY ACIDS
  2. FISH OIL [Concomitant]
     Active Substance: FISH OIL
  3. PROBIOTIC [Concomitant]
     Active Substance: PROBIOTICS NOS
  4. VITAMIN D [Concomitant]
     Active Substance: CHOLECALCIFEROL
  5. BENADRYL [Suspect]
     Active Substance: DIPHENHYDRAMINE HYDROCHLORIDE
     Indication: HYPERSENSITIVITY
     Dosage: ?          QUANTITY:2 TABLET(S);?
     Route: 048
     Dates: start: 20180306, end: 20180307

REACTIONS (3)
  - Hypersensitivity [None]
  - Condition aggravated [None]
  - Anaphylactic reaction [None]

NARRATIVE: CASE EVENT DATE: 20180307
